FAERS Safety Report 23275196 (Version 1)
Quarter: 2023Q4

REPORT INFORMATION
  Report Type: Other
  Country: SE (occurrence: SE)
  Receive Date: 20231208
  Receipt Date: 20231208
  Transmission Date: 20240109
  Serious: Yes (Other)
  Sender: FDA-Public Use
  Company Number: SE-DENTSPLY-2023SCDP000408

PATIENT
  Age: 20 Year
  Sex: Male

DRUGS (1)
  1. MEPIVACAINE HYDROCHLORIDE [Suspect]
     Active Substance: MEPIVACAINE HYDROCHLORIDE
     Indication: Lumbar puncture
     Dosage: 2 MILLILITER TOTAL CARBOCAINE INJECTION FLUID, SOLUTION/SOLUTION FOR INJECTION
     Route: 058
     Dates: start: 20231116, end: 20231116

REACTIONS (2)
  - Pruritus [Recovered/Resolved]
  - Urticaria [Recovered/Resolved]

NARRATIVE: CASE EVENT DATE: 20231116
